FAERS Safety Report 17674428 (Version 1)
Quarter: 2020Q2

REPORT INFORMATION
  Report Type: Spontaneous
  Country: FR (occurrence: FR)
  Receive Date: 20200416
  Receipt Date: 20200416
  Transmission Date: 20200714
  Serious: Yes (Hospitalization)
  Sender: FDA-Public Use
  Company Number: FR-PFIZER INC-2020155375

PATIENT
  Age: 80 Year
  Sex: Female

DRUGS (1)
  1. METHOTREXATE SODIUM. [Suspect]
     Active Substance: METHOTREXATE SODIUM
     Indication: RHEUMATOID ARTHRITIS
     Dosage: 15 MG, DAILY (10 MG ON THURSDAYS)
     Route: 048
     Dates: start: 20200312, end: 20200319

REACTIONS (5)
  - Accidental overdose [Recovered/Resolved]
  - Melaena [Recovered/Resolved]
  - Inappropriate schedule of product administration [Unknown]
  - Mucosal ulceration [Recovering/Resolving]
  - Pancytopenia [Recovering/Resolving]

NARRATIVE: CASE EVENT DATE: 202003
